FAERS Safety Report 8439786-8 (Version None)
Quarter: 2012Q2

REPORT INFORMATION
  Report Type: 
  Country: None (occurrence: None)
  Receive Date: 20120615
  Receipt Date: 20120607
  Transmission Date: 20120825
  Serious: No
  Sender: FDA-Public Use
  Company Number: US-B.I. PHARMACEUTICALS,INC./RIDGEFIELD-2012-BP-13247BP

PATIENT
  Sex: Female
  Weight: 52 kg

DRUGS (5)
  1. ZOCOR [Concomitant]
     Indication: BLOOD CHOLESTEROL
     Route: 048
  2. CLOMAZEPAM [Concomitant]
     Indication: SLEEP DISORDER
     Dosage: 1 MG
     Route: 048
  3. LISINOPRIL [Concomitant]
     Indication: BLOOD PRESSURE
     Route: 048
  4. SPIRIVA [Suspect]
     Indication: CHRONIC OBSTRUCTIVE PULMONARY DISEASE
     Dosage: 18 MCG
     Route: 055
     Dates: start: 20120521, end: 20120605
  5. ASPIRIN [Concomitant]
     Indication: CARDIAC DISORDER
     Dosage: 81 MG
     Route: 048

REACTIONS (3)
  - OROPHARYNGEAL PAIN [None]
  - STOMATITIS [None]
  - OEDEMA MOUTH [None]
